FAERS Safety Report 6360493-X (Version None)
Quarter: 2009Q3

REPORT INFORMATION
  Report Type: 
  Country: None (occurrence: None)
  Receive Date: 20090917
  Receipt Date: 20090910
  Transmission Date: 20100115
  Serious: Yes (Other)
  Sender: FDA-Public Use
  Company Number: US-MERCK-0907USA01747

PATIENT
  Age: 10 Year
  Sex: Male

DRUGS (3)
  1. SINGULAIR [Suspect]
     Indication: HYPERSENSITIVITY
     Route: 048
     Dates: start: 20090401, end: 20090709
  2. ALBUTEROL [Concomitant]
     Route: 065
  3. ADVAIR HFA [Concomitant]
     Route: 065

REACTIONS (1)
  - SUICIDAL IDEATION [None]
